FAERS Safety Report 9418349 (Version 2)
Quarter: 2013Q3

REPORT INFORMATION
  Report Type: Spontaneous
  Country: CA (occurrence: CA)
  Receive Date: 20130725
  Receipt Date: 20130913
  Transmission Date: 20140515
  Serious: Yes (Other)
  Sender: FDA-Public Use
  Company Number: CA-ROCHE-1252511

PATIENT
  Age: 60 Year
  Sex: Male

DRUGS (6)
  1. XOLAIR [Suspect]
     Indication: ASTHMA
     Route: 058
     Dates: start: 20121102
  2. ALVESCO [Concomitant]
  3. SYMBICORT [Concomitant]
  4. VENTOLINE [Concomitant]
  5. BIAXIN (CANADA) [Concomitant]
     Route: 065
     Dates: end: 20130901
  6. COMBIVENT [Concomitant]

REACTIONS (7)
  - Lung infection [Unknown]
  - Herpes zoster [Unknown]
  - Nasopharyngitis [Unknown]
  - Productive cough [Unknown]
  - Dyspnoea [Unknown]
  - Pyrexia [Unknown]
  - Cough [Unknown]
